FAERS Safety Report 13708655 (Version 5)
Quarter: 2020Q3

REPORT INFORMATION
  Report Type: Report from Study
  Country: US (occurrence: US)
  Receive Date: 20170630
  Receipt Date: 20200825
  Transmission Date: 20201102
  Serious: Yes (Death, Hospitalization)
  Sender: FDA-Public Use
  Company Number: US-ACTELION-A-NJ2017-156012

PATIENT
  Sex: Female
  Weight: 63.49 kg

DRUGS (4)
  1. UPTRAVI [Suspect]
     Active Substance: SELEXIPAG
     Indication: PULMONARY ARTERIAL HYPERTENSION
     Dosage: 1040 MCG, BID
     Route: 048
  2. ADEMPAS [Concomitant]
     Active Substance: RIOCIGUAT
  3. UPTRAVI [Suspect]
     Active Substance: SELEXIPAG
     Dosage: 1000 MCG, BID
     Route: 048
  4. ADCIRCA [Concomitant]
     Active Substance: TADALAFIL

REACTIONS (9)
  - Urine abnormality [Unknown]
  - Cough [Unknown]
  - Dyspnoea [Not Recovered/Not Resolved]
  - Chronic obstructive pulmonary disease [Unknown]
  - Abdominal pain upper [Unknown]
  - Fatigue [Not Recovered/Not Resolved]
  - Death [Fatal]
  - Bronchitis [Unknown]
  - Nausea [Not Recovered/Not Resolved]
